FAERS Safety Report 9996191 (Version 1)
Quarter: 2014Q1

REPORT INFORMATION
  Report Type: Spontaneous
  Country: US (occurrence: US)
  Receive Date: 20140228
  Receipt Date: 20140228
  Transmission Date: 20141002
  Serious: Yes (Death, Hospitalization)
  Sender: FDA-Public Use
  Company Number: US-JNJFOC-2001038952US

PATIENT
  Age: 79 Year
  Sex: Female

DRUGS (3)
  1. MOTRIN [Suspect]
     Indication: PAIN
     Dosage: FREQUENCY TEXT: BID DAILY DOSE TEXT: 800 MILLIGRAM, BID DAILY DOSE QTY: 1600 MG
     Route: 048
     Dates: start: 1985, end: 1987
  2. TUMS (CALCIUM CARBONATE) [Concomitant]
  3. ALCOHOL (ETHANOL) [Concomitant]

REACTIONS (3)
  - Renal failure chronic [Fatal]
  - Abdominal pain [Unknown]
  - Haematuria [Unknown]
